FAERS Safety Report 4535214-3 (Version None)
Quarter: 2004Q4

REPORT INFORMATION
  Report Type: 
  Country: None (occurrence: None)
  Receive Date: 20041214
  Receipt Date: 20041008
  Transmission Date: 20050328
  Serious: No
  Sender: FDA-Public Use
  Company Number: 2004238469US

PATIENT
  Sex: Female
  Weight: 45.4 kg

DRUGS (6)
  1. BEXTRA [Suspect]
     Indication: PAIN
     Dosage: 10 MG, QD, ORAL
     Route: 048
     Dates: start: 20041001
  2. COZAAR [Concomitant]
  3. NEXIUM [Concomitant]
  4. ZOCOR [Concomitant]
  5. LASIX [Concomitant]
  6. POTASSIUM [Concomitant]

REACTIONS (5)
  - ABDOMINAL PAIN UPPER [None]
  - BODY HEIGHT DECREASED [None]
  - CONSTIPATION [None]
  - DIARRHOEA [None]
  - MUSCLE CRAMP [None]
